FAERS Safety Report 9102374 (Version 1)
Quarter: 2013Q1

REPORT INFORMATION
  Report Type: Spontaneous
  Country: JP (occurrence: JP)
  Receive Date: 20130218
  Receipt Date: 20130218
  Transmission Date: 20140127
  Serious: Yes (Death)
  Sender: FDA-Public Use
  Company Number: JP-BAYER-2013-018774

PATIENT
  Age: 72 Year
  Sex: Male

DRUGS (2)
  1. NEXAVAR [Suspect]
     Indication: RENAL CELL CARCINOMA
     Dosage: DAILY DOSE 400 MG
     Route: 048
     Dates: start: 20130207, end: 20130208
  2. NEXAVAR [Suspect]
     Indication: RENAL CELL CARCINOMA
     Dosage: DAILY DOSE 400 MG VIA GASTRIC TUBE
     Route: 050
     Dates: start: 20130209, end: 20130209

REACTIONS (1)
  - Renal cell carcinoma [Fatal]
